FAERS Safety Report 5745439-7 (Version None)
Quarter: 2008Q2

REPORT INFORMATION
  Report Type: 
  Country: None (occurrence: None)
  Receive Date: 20080521
  Receipt Date: 20080514
  Transmission Date: 20081010
  Serious: Yes (Other)
  Sender: FDA-Public Use
  Company Number: DE-JNJFOC-20071003200

PATIENT
  Sex: Female
  Weight: 48 kg

DRUGS (2)
  1. TOPAMAX [Suspect]
     Indication: PARTIAL SEIZURES
     Route: 048
  2. L-THYROXIN [Concomitant]
     Indication: HYPOTHYROIDISM
     Route: 048

REACTIONS (1)
  - RHABDOMYOLYSIS [None]
